FAERS Safety Report 20663821 (Version 1)
Quarter: 2022Q2

REPORT INFORMATION
  Report Type: Spontaneous
  Country: OM (occurrence: None)
  Receive Date: 20220401
  Receipt Date: 20220401
  Transmission Date: 20220720
  Serious: Yes (Hospitalization, Other)
  Sender: FDA-Public Use
  Company Number: OM-MLMSERVICE-20220315-3432776-1

PATIENT
  Age: 58 Year
  Sex: Male
  Weight: 69 kg

DRUGS (7)
  1. STALEVO [Suspect]
     Active Substance: CARBIDOPA\ENTACAPONE\LEVODOPA
     Indication: Parkinson^s disease
     Dosage: STALEVO100/25/200 X4 PER DAY
     Route: 065
  2. CARBIDOPA\LEVODOPA [Suspect]
     Active Substance: CARBIDOPA\LEVODOPA
     Indication: Parkinson^s disease
     Dosage: STRENGHT: 100MG, THE DAILY DOSE OF LEVODOPA WAS INCREASED GRADUALLY TO 800 MG
     Route: 065
  3. CARBIDOPA\LEVODOPA [Suspect]
     Active Substance: CARBIDOPA\LEVODOPA
     Dosage: LEVODOPA 100MG- CARBIDOPA 25 MG
     Route: 065
     Dates: start: 20170524
  4. SINEMET [Suspect]
     Active Substance: CARBIDOPA\LEVODOPA
     Indication: Parkinson^s disease
     Dosage: CR LEVODOPA 200 MG + CARBIDOPA 50 MG
     Route: 065
  5. SINEMET [Suspect]
     Active Substance: CARBIDOPA\LEVODOPA
     Dosage: DOSE REDUCED, LEVODOPA 250 MG-CARBIDOPA 25 MG
     Route: 065
  6. SINEMET [Suspect]
     Active Substance: CARBIDOPA\LEVODOPA
     Dosage: DOSE REDUCED, LEVODOPA DOSE TO 800 MG
     Route: 065
  7. AMANTADINE [Concomitant]
     Active Substance: AMANTADINE
     Indication: Parkinson^s disease
     Route: 065

REACTIONS (2)
  - Dyskinesia [Recovered/Resolved]
  - Dopamine dysregulation syndrome [Recovered/Resolved]

NARRATIVE: CASE EVENT DATE: 20180107
